FAERS Safety Report 8742946 (Version 6)
Quarter: 2014Q1

REPORT INFORMATION
  Report Type: Report from Study
  Country: DE (occurrence: DE)
  Receive Date: 20120824
  Receipt Date: 20140131
  Transmission Date: 20141002
  Serious: Yes (Hospitalization)
  Sender: FDA-Public Use
  Company Number: PHHY2012DE070931

PATIENT
  Sex: Female
  Weight: 91 kg

DRUGS (6)
  1. AFINITOR [Suspect]
     Dosage: 10 MG, QD
     Route: 048
     Dates: start: 20120626, end: 20120725
  2. AFINITOR [Suspect]
     Dosage: 10 MG, QD
     Route: 048
     Dates: start: 20120926
  3. MORFIN [Concomitant]
     Indication: PAIN
     Dosage: 10 MG, BID
     Route: 048
  4. MOVICOL [Concomitant]
     Indication: PROPHYLAXIS
     Dosage: 3 DF, 3 PACKAGES / DAY
     Route: 048
  5. PANTOPRAZOLE [Concomitant]
     Indication: PROPHYLAXIS
     Dosage: 40 MG, PER DAY
  6. TARGIN [Concomitant]
     Indication: SPINAL OSTEOARTHRITIS
     Dosage: 20 MG/DAY
     Dates: start: 20121227

REACTIONS (6)
  - General physical health deterioration [Recovered/Resolved]
  - Pyrexia [Not Recovered/Not Resolved]
  - Dehydration [Recovered/Resolved]
  - Vomiting [Recovered/Resolved]
  - Subileus [Recovered/Resolved]
  - Peritoneal adhesions [Recovered/Resolved]
